FAERS Safety Report 9664439 (Version 1)
Quarter: 2013Q4

REPORT INFORMATION
  Report Type: Spontaneous
  Country: US (occurrence: US)
  Receive Date: 20131101
  Receipt Date: 20131101
  Transmission Date: 20140711
  Serious: Yes (Hospitalization)
  Sender: FDA-Public Use
  Company Number: US-BAYER-2013-133207

PATIENT
  Age: 41 Year
  Sex: Female
  Weight: 86.17 kg

DRUGS (5)
  1. YAZ [Suspect]
  2. TOPIRAMATE [Concomitant]
     Dosage: 50 MG, QD
     Route: 048
  3. PREDNISONE [Concomitant]
     Dosage: 20 MG, UNK
  4. SUMATRIPTAN SUCCINATE [Concomitant]
     Dosage: 25 MG, UNK
  5. MOTRIN [Concomitant]

REACTIONS (1)
  - Deep vein thrombosis [Recovering/Resolving]
